FAERS Safety Report 8550936-5 (Version None)
Quarter: 2012Q3

REPORT INFORMATION
  Report Type: 
  Country: None (occurrence: None)
  Receive Date: 20120730
  Receipt Date: 20120726
  Transmission Date: 20120928
  Serious: No
  Sender: FDA-Public Use
  Company Number: US-PFIZER INC-2012181775

PATIENT
  Sex: Male
  Weight: 70.295 kg

DRUGS (10)
  1. ASPIRIN [Concomitant]
     Dosage: 325 MG, UNK
  2. AMLODIPINE [Concomitant]
     Indication: HYPERTENSION
     Dosage: 10 MG, UNK
  3. VIAGRA [Suspect]
     Indication: ERECTILE DYSFUNCTION
     Dosage: 50 MG, AS NEEDED
     Route: 048
  4. MULTI-VITAMINS [Concomitant]
     Dosage: UNK
  5. DEXILANT [Concomitant]
     Dosage: 60 MG, UNK
  6. CYMBALTA [Interacting]
     Indication: ANXIETY
     Dosage: 60 MG, 1X/DAY
     Route: 048
     Dates: start: 20120601
  7. OMEGA-3 FETTY ACIDS [Concomitant]
     Dosage: 350 MG, UNK
  8. ALENDRONATE SODIUM [Concomitant]
     Dosage: 70 MG, WEEKLY
  9. ATENOLOL [Concomitant]
     Dosage: 25 MG, UNK
  10. FISH OIL [Concomitant]
     Dosage: 1200 MG, UNK

REACTIONS (3)
  - DRUG INTERACTION [None]
  - DRUG INEFFECTIVE [None]
  - SEXUAL DYSFUNCTION [None]
